FAERS Safety Report 8856955 (Version 1)
Quarter: 2012Q4

REPORT INFORMATION
  Report Type: 
  Country: US (occurrence: US)
  Receive Date: 20121023
  Receipt Date: 20121023
  Transmission Date: 20130627
  Serious: No
  Sender: FDA-Public Use
  Company Number: US-AMGEN-USASP2012055711

PATIENT
  Age: 28 Year
  Sex: Female
  Weight: 56.24 kg

DRUGS (4)
  1. ENBREL [Suspect]
     Indication: PRODUCT USED FOR UNKNOWN INDICATION
     Dosage: 50 mg, qwk
     Route: 058
  2. HUMIRA [Concomitant]
     Dosage: 40mg/0.8
  3. ADVAIR [Concomitant]
     Dosage: 100/50
  4. PROAIR                             /00139502/ [Concomitant]
     Dosage: UNK

REACTIONS (1)
  - Therapeutic response decreased [Unknown]
